FAERS Safety Report 6427133-2 (Version None)
Quarter: 2009Q4

REPORT INFORMATION
  Report Type: 
  Country: None (occurrence: None)
  Receive Date: 20091104
  Receipt Date: 20091030
  Transmission Date: 20100525
  Serious: Yes (Other)
  Sender: FDA-Public Use
  Company Number: CHPA2009US21154

PATIENT
  Age: 73 Year
  Sex: Female

DRUGS (1)
  1. SLOW FE IRON TABLETS (NCH) [Suspect]
     Indication: MINERAL SUPPLEMENTATION
     Dosage: 320 MG, QD
     Route: 048

REACTIONS (1)
  - GASTRIC CANCER [None]
